FAERS Safety Report 21512100 (Version 3)
Quarter: 2022Q4

REPORT INFORMATION
  Report Type: Report from Study
  Country: BR (occurrence: BR)
  Receive Date: 20221027
  Receipt Date: 20221123
  Transmission Date: 20230113
  Serious: Yes (Other)
  Sender: FDA-Public Use
  Company Number: BR-CELLTRION INC.-2022BR017680

PATIENT

DRUGS (3)
  1. INFLIXIMAB [Suspect]
     Active Substance: INFLIXIMAB
     Indication: Rheumatoid arthritis
     Dosage: 4 AMPOULES OF 100MG EVERY 2 MONTHS
     Route: 042
     Dates: start: 20221014
  2. LOSARTAN [Concomitant]
     Active Substance: LOSARTAN
     Indication: Hypertension
     Dosage: 1 PILL PER DAY
     Route: 048
     Dates: start: 2014
  3. METHOTREXATE [Concomitant]
     Active Substance: METHOTREXATE
     Indication: Arthritis
     Dosage: 8 PILLS PER WEEK
     Route: 048
     Dates: start: 2020

REACTIONS (3)
  - Oral surgery [Unknown]
  - Muscular weakness [Recovering/Resolving]
  - Pain [Unknown]

NARRATIVE: CASE EVENT DATE: 20221018
